FAERS Safety Report 8380506-3 (Version None)
Quarter: 2012Q2

REPORT INFORMATION
  Report Type: 
  Country: None (occurrence: None)
  Receive Date: 20120523
  Receipt Date: 20120516
  Transmission Date: 20120825
  Serious: Yes (Other)
  Sender: FDA-Public Use
  Company Number: BA-GLAXOSMITHKLINE-B0802866A

PATIENT
  Age: 67 Year
  Sex: Female

DRUGS (6)
  1. BECLOFORTE [Concomitant]
  2. ISOPTIN [Concomitant]
     Indication: ARRHYTHMIA
  3. ANAFRANIL [Concomitant]
     Indication: NERVOUS SYSTEM DISORDER
  4. BERODUAL [Concomitant]
  5. ALPRAZOLAM [Concomitant]
     Indication: NERVOUS SYSTEM DISORDER
  6. FLUTICASONE PROPIONATE/SALMETEROL [Suspect]
     Indication: CHRONIC OBSTRUCTIVE PULMONARY DISEASE
     Dosage: 500MCG TWICE PER DAY
     Route: 065

REACTIONS (2)
  - LEUKOCYTOSIS [None]
  - HAEMATOMA [None]
